FAERS Safety Report 11157183 (Version 2)
Quarter: 2015Q2

REPORT INFORMATION
  Report Type: Spontaneous
  Country: US (occurrence: US)
  Receive Date: 20150602
  Receipt Date: 20150605
  Transmission Date: 20150821
  Serious: Yes (Other)
  Sender: FDA-Public Use
  Company Number: PHEH2015US010075

PATIENT
  Sex: Female

DRUGS (8)
  1. CARVEDILOL. [Concomitant]
     Active Substance: CARVEDILOL
     Indication: PRODUCT USED FOR UNKNOWN INDICATION
     Dosage: 12.5 OT, UNK
     Route: 065
  2. ESOMEPRAZOLE [Suspect]
     Active Substance: ESOMEPRAZOLE
     Indication: PRODUCT USED FOR UNKNOWN INDICATION
     Route: 065
  3. EXFORGE [Suspect]
     Active Substance: AMLODIPINE BESYLATE\VALSARTAN
     Indication: PRODUCT USED FOR UNKNOWN INDICATION
     Dosage: 1 DF (160 VALS, 10 AMLO), UNK
     Route: 065
  4. OMEGA ESSENTIALS [Concomitant]
     Indication: PRODUCT USED FOR UNKNOWN INDICATION
     Route: 065
  5. METFORMIN [Concomitant]
     Active Substance: METFORMIN HYDROCHLORIDE
     Indication: PRODUCT USED FOR UNKNOWN INDICATION
     Route: 065
  6. GLYBURIDE. [Concomitant]
     Active Substance: GLYBURIDE
     Indication: PRODUCT USED FOR UNKNOWN INDICATION
     Route: 065
  7. NEXIUM I.V. [Concomitant]
     Active Substance: ESOMEPRAZOLE SODIUM
     Indication: PRODUCT USED FOR UNKNOWN INDICATION
     Route: 065
  8. ASTHMA-SPRAY [Concomitant]
     Indication: PRODUCT USED FOR UNKNOWN INDICATION
     Route: 065

REACTIONS (24)
  - Fall [Unknown]
  - Urine odour abnormal [Unknown]
  - Peripheral swelling [Unknown]
  - Syncope [Unknown]
  - Back pain [Unknown]
  - Tinnitus [Unknown]
  - Cough [Unknown]
  - Pneumonia [Unknown]
  - Urinary incontinence [Unknown]
  - Presyncope [Unknown]
  - Chromaturia [Unknown]
  - Fatigue [Unknown]
  - Pulmonary congestion [Unknown]
  - Renal impairment [Unknown]
  - Blood potassium decreased [Unknown]
  - Calculus urinary [Unknown]
  - Diarrhoea [Unknown]
  - Dizziness postural [Unknown]
  - Palpitations [Unknown]
  - Blood pressure increased [Unknown]
  - Breathing-related sleep disorder [Unknown]
  - Nephrolithiasis [Unknown]
  - Muscle spasms [Unknown]
  - Arrhythmia [Unknown]
